FAERS Safety Report 25035158 (Version 1)
Quarter: 2025Q1

REPORT INFORMATION
  Report Type: Spontaneous
  Country: US (occurrence: US)
  Receive Date: 20250304
  Receipt Date: 20250304
  Transmission Date: 20250409
  Serious: Yes (Hospitalization, Other)
  Sender: RANBAXY
  Company Number: US-SUN PHARMACEUTICAL INDUSTRIES LTD-2025R1-496421

PATIENT
  Sex: Female

DRUGS (1)
  1. BUPROPION [Suspect]
     Active Substance: BUPROPION
     Indication: Product used for unknown indication
     Route: 065

REACTIONS (8)
  - Drug level increased [Not Recovered/Not Resolved]
  - Accidental exposure to product [Unknown]
  - Overdose [Unknown]
  - Encephalopathy [Unknown]
  - Seizure [Unknown]
  - Cardiac arrest [Unknown]
  - Brain death [Unknown]
  - Shock [Unknown]
